FAERS Safety Report 8575863 (Version 2)
Quarter: 2014Q1

REPORT INFORMATION
  Report Type: Spontaneous
  Country: US (occurrence: None)
  Receive Date: 20120323
  Receipt Date: 20130305
  Transmission Date: 20141002
  Serious: Yes (Hospitalization, Other)
  Sender: FDA-Public Use
  Company Number: 163-21880-11081080

PATIENT
  Age: 54 Year
  Sex: Male
  Weight: 80.29 kg

DRUGS (8)
  1. REVLIMID [Suspect]
     Indication: PLASMA CELL MYELOMA
     Dosage: 5 MG, DAILY X 21 DAYS, PO
     Route: 048
     Dates: start: 201008, end: 201111
  2. XANAX [Concomitant]
  3. DECADRON [Concomitant]
  4. LORTAB [Concomitant]
  5. MELPHALAN HYDROCHLORIDE [Suspect]
     Indication: PRODUCT USED FOR UNKNOWN INDICATION
     Route: 048
     Dates: start: 201107, end: 201111
  6. ALPRAZOLAM [Concomitant]
  7. PEPCID (FAMOTIDINE) [Concomitant]
  8. REMERON (MIRTAZAPINE) [Concomitant]

REACTIONS (5)
  - Haemoglobin decreased [None]
  - Platelet count decreased [None]
  - Neutrophil count decreased [None]
  - White blood cell count decreased [None]
  - Bone marrow failure [None]
